FAERS Safety Report 4597187-7 (Version None)
Quarter: 2005Q1

REPORT INFORMATION
  Report Type: 
  Country: None (occurrence: None)
  Receive Date: 20050301
  Receipt Date: 20050217
  Transmission Date: 20050727
  Serious: Yes (Other)
  Sender: FDA-Public Use
  Company Number: HQWYE395817FEB05

PATIENT
  Age: 28 Year
  Sex: Female

DRUGS (4)
  1. EFFEXOR XR [Suspect]
     Dosage: 300 MG 1X PER 1 DAY; ORAL
     Route: 048
  2. EFFEXOR XR [Suspect]
     Dosage: 150 MG 1X PER 1 DAY; ORAL
     Route: 048
  3. EFFEXOR XR [Suspect]
  4. MULTIVITAMINS, PLAIN [Concomitant]

REACTIONS (4)
  - CARDIAC DISCOMFORT [None]
  - HYPOKALAEMIA [None]
  - MUSCLE SPASMS [None]
  - PARAESTHESIA [None]
